FAERS Safety Report 22154495 (Version 1)
Quarter: 2023Q1

REPORT INFORMATION
  Report Type: Other
  Country: None (occurrence: IN)
  Receive Date: 20230330
  Receipt Date: 20230330
  Transmission Date: 20230417
  Serious: Yes (Death, Other)
  Sender: FDA-Public Use
  Company Number: IN-Ajanta Pharma USA Inc.-2139698

PATIENT
  Age: 41 Year
  Sex: Male

DRUGS (2)
  1. SILDENAFIL CITRATE [Suspect]
     Active Substance: SILDENAFIL CITRATE
     Indication: Product used for unknown indication
     Route: 048
  2. ALCOHOL [Suspect]
     Active Substance: ALCOHOL
     Route: 048

REACTIONS (4)
  - Alcohol interaction [Fatal]
  - Cerebral haemorrhage [Fatal]
  - Renal tubular necrosis [Not Recovered/Not Resolved]
  - Hepatic ischaemia [Not Recovered/Not Resolved]
